FAERS Safety Report 6576330-4 (Version None)
Quarter: 2010Q1

REPORT INFORMATION
  Report Type: 
  Country: None (occurrence: None)
  Receive Date: 20100210
  Receipt Date: 20100122
  Transmission Date: 20100710
  Serious: No
  Sender: FDA-Public Use
  Company Number: US-JNJFOC-20100110620

PATIENT
  Sex: Female
  Weight: 77.11 kg

DRUGS (5)
  1. SANDOZ FENTANYL TRANSDERMAL SYSTEM [Suspect]
     Indication: BACK PAIN
     Dosage: NDC 0781 711 355
     Route: 062
  2. PAXIL [Concomitant]
     Indication: NERVOUSNESS
     Route: 048
  3. XANAX [Concomitant]
     Indication: NERVOUSNESS
     Route: 048
  4. LOVASTATIN [Concomitant]
     Indication: BLOOD CHOLESTEROL
     Route: 048
  5. ATENOLOL [Concomitant]
     Indication: BLOOD PRESSURE
     Route: 048

REACTIONS (3)
  - APPLICATION SITE ERYTHEMA [None]
  - DRUG INEFFECTIVE [None]
  - WRONG TECHNIQUE IN DRUG USAGE PROCESS [None]
